FAERS Safety Report 9444854 (Version 1)
Quarter: 2013Q3

REPORT INFORMATION
  Report Type: Spontaneous
  Country: US (occurrence: None)
  Receive Date: 20130805
  Receipt Date: 20130805
  Transmission Date: 20140515
  Serious: Yes (Hospitalization, Other)
  Sender: FDA-Public Use
  Company Number: 2013AP006942

PATIENT
  Age: 82 Year
  Sex: Female
  Weight: 79.5 kg

DRUGS (6)
  1. AMIODARONE HCL [Suspect]
  2. DABIGATRAN ETEXILATE [Suspect]
  3. WARFARIN [Concomitant]
  4. CARVEDILOL [Concomitant]
  5. SIMVASTATIN [Concomitant]
  6. FUROSEMIDE [Concomitant]

REACTIONS (8)
  - Coagulation time prolonged [None]
  - Potentiating drug interaction [None]
  - Accidental overdose [None]
  - Gastroenteritis [None]
  - Thrombocytopenia [None]
  - Blood creatinine increased [None]
  - Blood urea increased [None]
  - International normalised ratio increased [None]
